FAERS Safety Report 9745585 (Version 2)
Quarter: 2014Q1

REPORT INFORMATION
  Report Type: Spontaneous
  Country: US (occurrence: US)
  Receive Date: 20131211
  Receipt Date: 20140124
  Transmission Date: 20141002
  Serious: Yes (Hospitalization)
  Sender: FDA-Public Use
  Company Number: US-BAYER-2013-148028

PATIENT
  Age: 24 Year
  Sex: Female
  Weight: 61.22 kg

DRUGS (1)
  1. MIRENA [Suspect]
     Indication: CONTRACEPTION
     Dosage: 20 MCG/24HR, CONT
     Route: 015
     Dates: start: 20080715, end: 20080911

REACTIONS (4)
  - Uterine perforation [None]
  - Abdominal pain [None]
  - Injury [None]
  - Emotional distress [None]
